FAERS Safety Report 16085869 (Version 1)
Quarter: 2019Q1

REPORT INFORMATION
  Report Type: Report from Study
  Country: US (occurrence: US)
  Receive Date: 20190318
  Receipt Date: 20190318
  Transmission Date: 20190418
  Serious: Yes (Disabling)
  Sender: FDA-Public Use
  Company Number: US-HORIZON-VIM-0137-2019

PATIENT
  Age: 58 Year
  Sex: Female

DRUGS (1)
  1. VIMOVO [Suspect]
     Active Substance: ESOMEPRAZOLE MAGNESIUM\NAPROXEN
     Indication: PRODUCT USED FOR UNKNOWN INDICATION
     Dates: start: 20190306, end: 20190307

REACTIONS (4)
  - Hypertension [Unknown]
  - Hypoaesthesia [Unknown]
  - Headache [Unknown]
  - Bedridden [Unknown]

NARRATIVE: CASE EVENT DATE: 20190306
